FAERS Safety Report 9863739 (Version 3)
Quarter: 2014Q1

REPORT INFORMATION
  Report Type: Spontaneous
  Country: US (occurrence: US)
  Receive Date: 20140203
  Receipt Date: 20140310
  Transmission Date: 20141002
  Serious: Yes (Other)
  Sender: FDA-Public Use
  Company Number: US-PFIZER INC-2014030602

PATIENT
  Sex: Female

DRUGS (2)
  1. DILANTIN-125 [Suspect]
     Indication: POSTOPERATIVE CARE
     Dosage: UNK
     Dates: start: 198508
  2. DILANTIN-125 [Suspect]
     Dosage: UNK

REACTIONS (1)
  - Deafness [Unknown]
